FAERS Safety Report 14425358 (Version 1)
Quarter: 2018Q1

REPORT INFORMATION
  Report Type: Spontaneous
  Country: RU (occurrence: RU)
  Receive Date: 20180123
  Receipt Date: 20180123
  Transmission Date: 20180509
  Serious: Yes (Other)
  Sender: FDA-Public Use
  Company Number: RU-B. BRAUN MEDICAL INC.-2040622

PATIENT
  Age: 69 Year
  Sex: Female
  Weight: 92 kg

DRUGS (16)
  1. MEROPENEM. [Concomitant]
     Active Substance: MEROPENEM
     Route: 042
  2. METRONIDAZOLE. [Concomitant]
     Active Substance: METRONIDAZOLE
     Route: 048
  3. AMINO ACIDS INJECTION [Concomitant]
     Active Substance: ALANINE\ARGININE\ASPARTIC ACID\GLUTAMIC ACID\GLYCINE\HISTIDINE\ISOLEUCINE\LEUCINE\LYSINE ACETATE\METHIONINE\PHENYLALANINE\PROLINE\SERINE\THREONINE\TRYPTOPHAN\TYROSINE\VALINE
     Route: 042
  4. NOREPINEPHRINE. [Concomitant]
     Active Substance: NOREPINEPHRINE
     Route: 042
  5. SMECTITE DIOCTAEDRIC [Concomitant]
     Route: 048
  6. 0.9% SODIUM CHLORIDE INJECTION USP 0264-1800-31 0264-1800-32 [Suspect]
     Active Substance: SODIUM CHLORIDE
     Indication: MEDICATION DILUTION
     Route: 041
     Dates: start: 20171128, end: 20171215
  7. TIGECYLIN [Concomitant]
     Route: 042
  8. PARENTERAL NUTRITION [Concomitant]
     Active Substance: AMINO ACIDS\DEXTROSE\ELECTROLYTES NOS
     Route: 042
  9. OMEPRAZOLE. [Concomitant]
     Active Substance: OMEPRAZOLE
     Route: 042
  10. DEXTROSE. [Concomitant]
     Active Substance: DEXTROSE
     Route: 042
  11. MAGNESIUM SULFATE. [Concomitant]
     Active Substance: MAGNESIUM SULFATE
     Route: 042
  12. CEFOPERAZONE [Concomitant]
     Active Substance: CEFOPERAZONE
     Route: 042
  13. POTASSIUM CHLORIDE. [Concomitant]
     Active Substance: POTASSIUM CHLORIDE
     Route: 042
  14. POTASSIUM AND MAGNESIUM ASPARAGINAT [Concomitant]
     Route: 042
  15. AMIODARONE HYDROCHLORIDE. [Concomitant]
     Active Substance: AMIODARONE HYDROCHLORIDE
     Route: 042
  16. PARNAPARIN [Concomitant]

REACTIONS (2)
  - Hypotension [None]
  - Hyperthermia [None]
